FAERS Safety Report 17259367 (Version 4)
Quarter: 2020Q2

REPORT INFORMATION
  Report Type: Spontaneous
  Country: US (occurrence: US)
  Receive Date: 20200110
  Receipt Date: 20200630
  Transmission Date: 20200713
  Serious: No
  Sender: FDA-Public Use
  Company Number: US-SA-2020SA007068

PATIENT

DRUGS (2)
  1. DUPIXENT [Suspect]
     Active Substance: DUPILUMAB
     Dosage: 300 MG, QOW
     Route: 058
     Dates: start: 20191226
  2. DUPIXENT [Suspect]
     Active Substance: DUPILUMAB
     Indication: DERMATITIS ATOPIC
     Dosage: 300 MG, QOW
     Route: 058
     Dates: start: 20191206, end: 201912

REACTIONS (6)
  - Sunburn [Unknown]
  - Urticaria [Unknown]
  - Pruritus [Unknown]
  - Malaise [Unknown]
  - Myopia [Unknown]
  - Influenza [Unknown]

NARRATIVE: CASE EVENT DATE: 20200620
